FAERS Safety Report 7466540-6 (Version None)
Quarter: 2011Q2

REPORT INFORMATION
  Report Type: 
  Country: None (occurrence: None)
  Receive Date: 20110509
  Receipt Date: 20110428
  Transmission Date: 20111010
  Serious: Yes (Disabling)
  Sender: FDA-Public Use
  Company Number: GB-WATSON-2011-04318

PATIENT
  Age: 57 Year
  Sex: Female
  Weight: 74 kg

DRUGS (25)
  1. DEXAMETHASONE [Suspect]
     Indication: PRODUCT USED FOR UNKNOWN INDICATION
     Dosage: 8 MG, UNK
     Route: 042
     Dates: start: 20101229
  2. PACLITAXEL [Suspect]
     Dosage: 120 MG, UNK
     Route: 042
     Dates: start: 20110216, end: 20110216
  3. PACLITAXEL [Suspect]
     Dosage: 148 MG, UNK
     Route: 042
     Dates: start: 20110126, end: 20110126
  4. SODIUM CHLORIDE [Suspect]
     Dosage: 250 ML, UNK
     Route: 042
     Dates: start: 20110222, end: 20110222
  5. PACLITAXEL [Suspect]
     Dosage: 148 MG, UNK
     Route: 042
     Dates: start: 20110105, end: 20110105
  6. SODIUM CHLORIDE [Suspect]
     Dosage: 100 ML, UNK
     Route: 042
     Dates: start: 20101229
  7. RANITIDINE HYDROCHLORIDE [Suspect]
     Indication: PRODUCT USED FOR UNKNOWN INDICATION
     Dosage: 50 MG, UNK
     Route: 042
     Dates: start: 20101229
  8. SODIUM CHLORIDE [Suspect]
     Dosage: 250 ML, UNK
     Route: 042
     Dates: start: 20110209, end: 20110209
  9. SODIUM CHLORIDE [Suspect]
     Dosage: 250 ML, UNK
     Route: 042
     Dates: start: 20110126, end: 20110126
  10. SODIUM CHLORIDE [Suspect]
     Dosage: 250 ML, UNK
     Route: 042
     Dates: start: 20110119, end: 20110119
  11. CHLORPHENIRAMINE MALEATE [Suspect]
     Indication: PRODUCT USED FOR UNKNOWN INDICATION
     Dosage: 10 MG, UNK
     Route: 042
     Dates: start: 20101229
  12. SODIUM CHLORIDE [Suspect]
     Indication: BREAST CANCER
     Dosage: 100 ML, UNK
     Route: 042
  13. SODIUM CHLORIDE [Suspect]
     Dosage: 250 ML, UNK
     Route: 042
     Dates: start: 20110112, end: 20110112
  14. SODIUM CHLORIDE [Suspect]
     Dosage: 250 ML, UNK
     Route: 042
     Dates: start: 20101229, end: 20101229
  15. PACLITAXEL [Suspect]
     Indication: BREAST CANCER
     Dosage: 148 MG, UNK
     Route: 042
     Dates: start: 20110222, end: 20110222
  16. PACLITAXEL [Suspect]
     Dosage: UNK
     Route: 042
     Dates: start: 20110201
  17. PACLITAXEL [Suspect]
     Dosage: 148 MG, UNK
     Route: 042
     Dates: start: 20110209, end: 20110209
  18. PACLITAXEL [Suspect]
     Dosage: 148 MG, UNK
     Route: 042
     Dates: start: 20110119, end: 20110119
  19. PACLITAXEL [Suspect]
     Dosage: 148 MG, UNK
     Route: 042
     Dates: start: 20101229, end: 20101229
  20. SODIUM CHLORIDE [Suspect]
     Dosage: 250 ML, UNK
     Route: 042
     Dates: start: 20110202, end: 20110202
  21. SODIUM CHLORIDE [Suspect]
     Dosage: 250 ML, UNK
     Route: 042
     Dates: start: 20110216, end: 20110216
  22. SODIUM CHLORIDE [Suspect]
     Dosage: 250 ML, UNK
     Route: 042
     Dates: start: 20110105, end: 20110105
  23. ALOXI [Suspect]
     Indication: PRODUCT USED FOR UNKNOWN INDICATION
     Dosage: 250 MG, UNK
     Route: 042
     Dates: start: 20101229
  24. PACLITAXEL [Suspect]
     Dosage: 148 MG, UNK
     Route: 042
     Dates: start: 20110202, end: 20110202
  25. PACLITAXEL [Suspect]
     Dosage: 148 MG, UNK
     Route: 042
     Dates: start: 20110112, end: 20110112

REACTIONS (1)
  - NEUROPATHY PERIPHERAL [None]
